FAERS Safety Report 9182267 (Version 1)
Quarter: 2012Q4

REPORT INFORMATION
  Report Type: 
  Country: US (occurrence: US)
  Receive Date: 20121030
  Receipt Date: 20121030
  Transmission Date: 20130627
  Serious: No
  Sender: FDA-Public Use
  Company Number: US-GLAXOSMITHKLINE-A0990441A

PATIENT
  Age: 65 Year
  Sex: Female

DRUGS (5)
  1. SEREVENT [Suspect]
     Indication: ASTHMA
     Dosage: 2PUFF Twice per day
     Route: 055
  2. PRO-AIR [Concomitant]
  3. ALLERGY MEDICATION [Concomitant]
  4. METOCLOPRAMIDE [Concomitant]
  5. LEVOTHYROXINE [Concomitant]

REACTIONS (2)
  - Nocturnal dyspnoea [Unknown]
  - Product quality issue [Unknown]
